FAERS Safety Report 12855643 (Version 2)
Quarter: 2016Q4

REPORT INFORMATION
  Report Type: Spontaneous
  Country: US (occurrence: US)
  Receive Date: 20161017
  Receipt Date: 20161021
  Transmission Date: 20170207
  Serious: No
  Sender: FDA-Public Use
  Company Number: US-TAIHO ONCOLOGY INC-EU-2016-02538

PATIENT
  Sex: Female

DRUGS (7)
  1. PARACETAMOL/HYDROCODONE BITARTRATE [Concomitant]
     Dosage: NI
  2. DULOXETINE. [Concomitant]
     Active Substance: DULOXETINE
     Dosage: NI
  3. LETROZOLE. [Concomitant]
     Active Substance: LETROZOLE
     Dosage: NI
  4. GABAPENTIN. [Concomitant]
     Active Substance: GABAPENTIN
     Dosage: NI
  5. SIMVASTATIN. [Concomitant]
     Active Substance: SIMVASTATIN
     Dosage: NI
  6. CELECOXIB. [Concomitant]
     Active Substance: CELECOXIB
     Dosage: NI
  7. LONSURF [Suspect]
     Active Substance: TIPIRACIL HYDROCHLORIDE\TRIFLURIDINE
     Indication: COLON CANCER
     Route: 048
     Dates: start: 201604

REACTIONS (1)
  - Skin wrinkling [Unknown]

NARRATIVE: CASE EVENT DATE: 2016
